FAERS Safety Report 7603306-8 (Version None)
Quarter: 2011Q3

REPORT INFORMATION
  Report Type: 
  Country: None (occurrence: None)
  Receive Date: 20110712
  Receipt Date: 20110629
  Transmission Date: 20111222
  Serious: Yes (Hospitalization)
  Sender: FDA-Public Use
  Company Number: PHFR2011GB03528

PATIENT
  Sex: Female

DRUGS (4)
  1. VALPROATE SODIUM [Concomitant]
     Dosage: 600 MG, UNK
     Route: 048
  2. CLOZAPINE [Suspect]
     Dosage: 300MG IN DIVIDED DOSES
  3. CLOZAPINE [Suspect]
     Indication: SCHIZOPHRENIA
     Route: 048
     Dates: start: 19991117
  4. TETRABENAZINE [Concomitant]
     Dosage: 50 MG, UNK
     Route: 048

REACTIONS (2)
  - CONVULSION [None]
  - CONVERSION DISORDER [None]
